FAERS Safety Report 9159915 (Version 3)
Quarter: 2013Q4

REPORT INFORMATION
  Report Type: Spontaneous
  Country: GB (occurrence: GB)
  Receive Date: 20130313
  Receipt Date: 20131121
  Transmission Date: 20140711
  Serious: Yes (Death, Hospitalization, Other)
  Sender: FDA-Public Use
  Company Number: PHFR2013GB001642

PATIENT
  Sex: Male

DRUGS (3)
  1. CLOZARIL [Suspect]
     Indication: SCHIZOPHRENIA
     Dosage: UNK
     Dates: start: 20061124
  2. CLOZARIL [Suspect]
     Dosage: 275 MG, UNK
     Route: 048
  3. HYOSCINE [Concomitant]
     Indication: SALIVARY HYPERSECRETION
     Dosage: 0.3 MG, TID
     Route: 048
     Dates: start: 201201

REACTIONS (6)
  - Tachycardia [Fatal]
  - Cardiomegaly [Fatal]
  - Acute left ventricular failure [Fatal]
  - Mental disorder [Unknown]
  - Chest pain [Unknown]
  - Overweight [Unknown]
